FAERS Safety Report 7760231-X (Version None)
Quarter: 2011Q3

REPORT INFORMATION
  Report Type: 
  Country: None (occurrence: None)
  Receive Date: 20110919
  Receipt Date: 20110909
  Transmission Date: 20111222
  Serious: Yes (Other)
  Sender: FDA-Public Use
  Company Number: US-GLAXOSMITHKLINE-A0944838A

PATIENT
  Age: 59 Year
  Sex: Female
  Weight: 93.2 kg

DRUGS (9)
  1. NAMENDA [Concomitant]
  2. DESONIDE [Concomitant]
  3. METOPROLOL TARTRATE [Concomitant]
  4. LORAZEPAM [Concomitant]
  5. ZOLPIDEM [Concomitant]
  6. ONDANSETRON [Concomitant]
  7. MELATONIN [Concomitant]
  8. TYKERB [Suspect]
     Indication: PRODUCT USED FOR UNKNOWN INDICATION
     Dosage: 1250MG PER DAY
     Route: 048
  9. METROCREAM [Concomitant]

REACTIONS (2)
  - PAIN [None]
  - APPENDICITIS [None]
